FAERS Safety Report 7045779-8 (Version None)
Quarter: 2010Q4

REPORT INFORMATION
  Report Type: 
  Country: None (occurrence: None)
  Receive Date: 20101014
  Receipt Date: 20101001
  Transmission Date: 20110411
  Serious: Yes (Other)
  Sender: FDA-Public Use
  Company Number: FR-ELI_LILLY_AND_COMPANY-FR201010000152

PATIENT
  Sex: Female

DRUGS (7)
  1. PROZAC [Suspect]
     Indication: DEPRESSION
     Dosage: 20 MG, DAILY (1/D)
     Route: 048
     Dates: start: 20060101
  2. MATRIFEN [Concomitant]
     Indication: PAIN
     Dosage: 50 UG/  HOUR
     Route: 062
  3. DOMPERIDONE [Concomitant]
  4. PLAVIX [Concomitant]
  5. TARKA [Concomitant]
  6. FENTANYL [Concomitant]
  7. DURAGESIC-100 [Concomitant]

REACTIONS (3)
  - DEMENTIA [None]
  - DISTURBANCE IN ATTENTION [None]
  - EXECUTIVE DYSFUNCTION [None]
